FAERS Safety Report 23472564 (Version 1)
Quarter: 2024Q1

REPORT INFORMATION
  Report Type: Spontaneous
  Country: US (occurrence: US)
  Receive Date: 20240202
  Receipt Date: 20240202
  Transmission Date: 20240410
  Serious: Yes (Hospitalization, Other)
  Sender: FDA-Public Use
  Company Number: US-GLAXOSMITHKLINE-US2024GSK014557

PATIENT

DRUGS (3)
  1. VALACYCLOVIR [Suspect]
     Active Substance: VALACYCLOVIR HYDROCHLORIDE
     Indication: Herpes zoster
     Dosage: 1 G, TID
  2. TRAMADOL [Concomitant]
     Active Substance: TRAMADOL\TRAMADOL HYDROCHLORIDE
     Indication: Pain
     Dosage: 50 MG, TID (AS NEEDED)
  3. TRAMADOL [Concomitant]
     Active Substance: TRAMADOL\TRAMADOL HYDROCHLORIDE
     Dosage: 150 MG, QD

REACTIONS (16)
  - Neurotoxicity [Unknown]
  - Toxicity to various agents [Unknown]
  - Mental status changes [Recovering/Resolving]
  - Fall [Unknown]
  - Speech disorder [Unknown]
  - Dissociation [Unknown]
  - Hallucination, visual [Recovered/Resolved]
  - Feeling abnormal [Unknown]
  - Miosis [Unknown]
  - Pupil fixed [Unknown]
  - Dysarthria [Unknown]
  - Ataxia [Unknown]
  - Dysdiadochokinesis [Unknown]
  - Hypocalcaemia [Unknown]
  - Disorientation [Recovering/Resolving]
  - Prescribed overdose [Unknown]
